FAERS Safety Report 8150746-7 (Version None)
Quarter: 2012Q1

REPORT INFORMATION
  Report Type: 
  Country: None (occurrence: None)
  Receive Date: 20120220
  Receipt Date: 20120216
  Transmission Date: 20120608
  Serious: No
  Sender: FDA-Public Use
  Company Number: PR-BAYER-2012-016067

PATIENT

DRUGS (2)
  1. NEXAVAR [Suspect]
     Dosage: 400 MG, DAILY
     Route: 048
  2. NEXAVAR [Suspect]
     Indication: HEPATIC NEOPLASM MALIGNANT
     Dosage: 400 MG BID
     Route: 048

REACTIONS (1)
  - DISORIENTATION [None]
